FAERS Safety Report 25857324 (Version 1)
Quarter: 2025Q3

REPORT INFORMATION
  Report Type: Spontaneous
  Country: US (occurrence: GB)
  Receive Date: 20250929
  Receipt Date: 20250929
  Transmission Date: 20251020
  Serious: Yes (Other)
  Sender: AUROBINDO
  Company Number: US-AUROBINDO-AUR-APL-2025-048478

PATIENT
  Age: 69 Year
  Sex: Female

DRUGS (2)
  1. LEVETIRACETAM [Suspect]
     Active Substance: LEVETIRACETAM
     Indication: Seizure
     Route: 065
  2. LORAZEPAM [Concomitant]
     Active Substance: LORAZEPAM
     Indication: Seizure
     Route: 065

REACTIONS (1)
  - Drug ineffective [Unknown]
